FAERS Safety Report 8489407-3 (Version None)
Quarter: 2012Q3

REPORT INFORMATION
  Report Type: 
  Country: None (occurrence: None)
  Receive Date: 20120705
  Receipt Date: 20120703
  Transmission Date: 20120928
  Serious: No
  Sender: FDA-Public Use
  Company Number: US-B.I. PHARMACEUTICALS,INC./RIDGEFIELD-2012-BP-14933BP

PATIENT
  Sex: Male

DRUGS (10)
  1. PRADAXA [Suspect]
     Indication: ATRIAL FIBRILLATION
     Dosage: 300 MG
     Route: 048
     Dates: start: 20110101
  2. HYDROCHLOROTHIAZIDE [Concomitant]
     Indication: HYPERTENSION
     Dosage: 25 MG
     Route: 048
  3. METFORMIN HCL [Concomitant]
     Indication: DIABETES MELLITUS
     Dosage: 1700 MG
     Route: 048
  4. VALSARTAN [Concomitant]
     Indication: HYPERTENSION
     Dosage: 160 MG
     Route: 048
  5. ASPIRIN [Concomitant]
     Dosage: 81 MG
     Route: 048
  6. ISOSORBIDE MONONITRATE [Concomitant]
     Indication: ANGINA PECTORIS
     Dosage: 30 MG
     Route: 048
  7. DIGOXIN [Concomitant]
     Indication: CARDIAC DISORDER
     Dosage: 25 MG
     Route: 048
  8. METOPROLOL SUCCINATE [Concomitant]
     Indication: HYPERTENSION
     Dosage: 50 MG
     Route: 048
  9. PLAVIX [Concomitant]
     Indication: STENT PLACEMENT
     Dosage: 75 MG
     Route: 048
  10. SIMVASTATIN [Concomitant]
     Indication: BLOOD CHOLESTEROL INCREASED
     Dosage: 80 MG
     Route: 048

REACTIONS (2)
  - GINGIVAL BLEEDING [None]
  - DRY MOUTH [None]
